FAERS Safety Report 8131395-3 (Version None)
Quarter: 2012Q1

REPORT INFORMATION
  Report Type: 
  Country: None (occurrence: None)
  Receive Date: 20120103
  Receipt Date: 20110830
  Transmission Date: 20120608
  Serious: No
  Sender: FDA-Public Use
  Company Number: AE-2011-001225

PATIENT
  Age: 57 Year
  Sex: Female
  Weight: 62.5964 kg

DRUGS (9)
  1. RIBAVIRIN [Concomitant]
  2. PRILOSEC [Concomitant]
  3. INCIVEK [Suspect]
     Dosage: 2250 MG (750 MG,3 IN 1 D),ORAL
     Route: 048
     Dates: start: 20110719
  4. CYMBALTA [Concomitant]
  5. ACETAMINOPHEN [Concomitant]
  6. DESICCATED THYROID (THYROID THERAPY) [Concomitant]
  7. BENADRYL [Concomitant]
  8. PEGASYS [Concomitant]
  9. ZOFRAN [Concomitant]

REACTIONS (4)
  - THYROID DISORDER [None]
  - NAUSEA [None]
  - MIGRAINE [None]
  - ABDOMINAL DISCOMFORT [None]
